FAERS Safety Report 4891235-2 (Version None)
Quarter: 2006Q1

REPORT INFORMATION
  Report Type: 
  Country: None (occurrence: None)
  Receive Date: 20060125
  Receipt Date: 20051222
  Transmission Date: 20060701
  Serious: Yes (Hospitalization)
  Sender: FDA-Public Use
  Company Number: FRWYE259022DEC05

PATIENT
  Age: 64 Year
  Sex: Male

DRUGS (4)
  1. ENBREL [Suspect]
     Indication: ANKYLOSING SPONDYLITIS
     Dosage: UNKNOWN
     Route: 058
     Dates: start: 20041001, end: 20050701
  2. PHENYLBUTAZONE [Concomitant]
  3. FORMOTEROL FUMARATE [Concomitant]
  4. BUDESONIDE [Concomitant]

REACTIONS (6)
  - CONDITION AGGRAVATED [None]
  - EMPHYSEMA [None]
  - HILAR LYMPHADENOPATHY [None]
  - LYMPHADENOPATHY MEDIASTINAL [None]
  - OBSTRUCTIVE AIRWAYS DISORDER [None]
  - WEIGHT INCREASED [None]
